FAERS Safety Report 6881825-X (Version None)
Quarter: 2010Q3

REPORT INFORMATION
  Report Type: 
  Country: None (occurrence: None)
  Receive Date: 20100729
  Receipt Date: 20100720
  Transmission Date: 20110219
  Serious: Yes (Other)
  Sender: FDA-Public Use
  Company Number: CN-PFIZER INC-2010090674

PATIENT

DRUGS (2)
  1. VFEND [Suspect]
     Dosage: UNK
     Dates: start: 20100101, end: 20100101
  2. INSULIN [Interacting]
     Indication: BLOOD GLUCOSE ABNORMAL
     Dosage: UNK
     Dates: start: 20100101, end: 20100101

REACTIONS (3)
  - BLOOD GLUCOSE DECREASED [None]
  - DRUG INTERACTION [None]
  - HYPERHIDROSIS [None]
